FAERS Safety Report 19111374 (Version 1)
Quarter: 2021Q2

REPORT INFORMATION
  Report Type: Spontaneous
  Country: US (occurrence: US)
  Receive Date: 20210408
  Receipt Date: 20210408
  Transmission Date: 20210717
  Serious: No
  Sender: FDA-Public Use
  Company Number: None

PATIENT
  Age: 52 Year
  Sex: Female
  Weight: 103.5 kg

DRUGS (6)
  1. SUMATRIPTAN TABLET USP 100MG [Suspect]
     Active Substance: SUMATRIPTAN SUCCINATE
     Indication: MIGRAINE
     Route: 048
     Dates: start: 20200406, end: 20200408
  2. BCOMPLEX [Concomitant]
  3. PROPRANOLOL ER [Concomitant]
     Active Substance: PROPRANOLOL HYDROCHLORIDE
  4. AMLODIPINE [Concomitant]
     Active Substance: AMLODIPINE BESYLATE
  5. FISH OIL [Concomitant]
     Active Substance: FISH OIL
  6. MULTIVITAMIN WITH EXTRA VITAMIN D [Concomitant]

REACTIONS (5)
  - Product quality issue [None]
  - Product substitution issue [None]
  - Drug ineffective [None]
  - Bedridden [None]
  - Moaning [None]

NARRATIVE: CASE EVENT DATE: 20200406
